FAERS Safety Report 5205821-3 (Version None)
Quarter: 2007Q1

REPORT INFORMATION
  Report Type: 
  Country: None (occurrence: None)
  Receive Date: 20070105
  Receipt Date: 20070105
  Transmission Date: 20070707
  Serious: No
  Sender: FDA-Public Use
  Company Number: None

PATIENT
  Age: 40 Year
  Sex: Female
  Weight: 53.5244 kg

DRUGS (1)
  1. LUPRON [Suspect]
     Indication: ENDOMETRIOSIS
     Dosage: 3.75MG   ONCE MONTHLY   IM
     Route: 030
     Dates: start: 20060504, end: 20060804

REACTIONS (2)
  - ARTHRALGIA [None]
  - RESORPTION BONE INCREASED [None]
